FAERS Safety Report 9876404 (Version 1)
Quarter: 2014Q1

REPORT INFORMATION
  Report Type: Spontaneous
  Country: US (occurrence: None)
  Receive Date: 20140205
  Receipt Date: 20140205
  Transmission Date: 20141002
  Serious: Yes (Hospitalization)
  Sender: FDA-Public Use
  Company Number: None

PATIENT
  Age: 51 Year
  Sex: Female
  Weight: 42.7 kg

DRUGS (3)
  1. CETUXIMAB (ERBITUX) (714692) [Suspect]
  2. DOCETAXEL (TAXOTERE) [Suspect]
  3. DOXYCYCLINE [Concomitant]

REACTIONS (2)
  - Dermatitis [None]
  - Rash [None]
